FAERS Safety Report 4346254-1 (Version None)
Quarter: 2004Q1

REPORT INFORMATION
  Report Type: 
  Country: None (occurrence: None)
  Receive Date: 20040325
  Receipt Date: 20031204
  Transmission Date: 20041129
  Serious: Yes (Other)
  Sender: FDA-Public Use
  Company Number: USA030947211

PATIENT
  Age: 78 Year
  Sex: Female
  Weight: 66 kg

DRUGS (4)
  1. EVISTA [Suspect]
     Indication: OSTEOPOROSIS
     Dosage: 60 MG/DAY
     Dates: start: 20000701, end: 20030901
  2. FORTEO [Suspect]
     Indication: OSTEOPOROSIS
     Dosage: 20 UG/DAY
     Dates: start: 20030912
  3. HIGH BLOOD PRESSURE MEDICATIONS [Concomitant]
  4. DEPRESSION MEDICATIONS [Concomitant]

REACTIONS (3)
  - INJECTION SITE HAEMORRHAGE [None]
  - PAIN [None]
  - SPINAL COMPRESSION FRACTURE [None]
